FAERS Safety Report 5298705-6 (Version None)
Quarter: 2007Q2

REPORT INFORMATION
  Report Type: 
  Country: None (occurrence: None)
  Receive Date: 20070417
  Receipt Date: 20070404
  Transmission Date: 20071010
  Serious: Yes (Other)
  Sender: FDA-Public Use
  Company Number: PHFR2007GB01249

PATIENT
  Age: 76 Year
  Sex: Female

DRUGS (1)
  1. TEGRETOL [Suspect]
     Indication: EPILEPSY
     Dosage: 200 MG, BID
     Route: 048
     Dates: start: 20000101, end: 20051101

REACTIONS (4)
  - LICHENOID KERATOSIS [None]
  - MOUTH ULCERATION [None]
  - ORAL PAIN [None]
  - SKIN ULCER [None]
